FAERS Safety Report 7355478-0 (Version None)
Quarter: 2011Q1

REPORT INFORMATION
  Report Type: 
  Country: None (occurrence: None)
  Receive Date: 20110307
  Receipt Date: 20110218
  Transmission Date: 20110831
  Serious: Yes (Death)
  Sender: FDA-Public Use
  Company Number: 2011020034

PATIENT
  Sex: Male

DRUGS (7)
  1. ONSOLIS [Suspect]
     Indication: CANCER PAIN
     Dosage: 200, 400  MCG, 3 TIMES DAILY, AS NEEDED, BU
     Dates: start: 20101101, end: 20101130
  2. ONSOLIS [Suspect]
     Indication: CANCER PAIN
     Dosage: 200, 400  MCG, 3 TIMES DAILY, AS NEEDED, BU
     Dates: start: 20101201
  3. LUNESTA [Concomitant]
  4. ONSOLIS [Suspect]
  5. NAPROXEN SODIUM [Concomitant]
  6. AMBIEN [Concomitant]
  7. EMBEDA [Concomitant]

REACTIONS (2)
  - NEOPLASM MALIGNANT [None]
  - MALIGNANT MELANOMA [None]
